FAERS Safety Report 15368592 (Version 3)
Quarter: 2019Q3

REPORT INFORMATION
  Report Type: Report from Study
  Country: None (occurrence: US)
  Receive Date: 20180911
  Receipt Date: 20190715
  Transmission Date: 20191004
  Serious: Yes (Other)
  Sender: FDA-Public Use
  Company Number: US-ABBVIE-18K-163-2333867-00

PATIENT
  Age: 59 Year
  Sex: Female
  Weight: 83.08 kg

DRUGS (9)
  1. MELOXICAM. [Concomitant]
     Active Substance: MELOXICAM
     Indication: PRODUCT USED FOR UNKNOWN INDICATION
  2. OSTEO BI-FLEX [Concomitant]
     Active Substance: CHONDROITIN SULFATE A\GLUCOSAMINE
     Indication: PRODUCT USED FOR UNKNOWN INDICATION
  3. VITAMIN C [Concomitant]
     Active Substance: ASCORBIC ACID
     Indication: PRODUCT USED FOR UNKNOWN INDICATION
  4. FOLIC ACID. [Concomitant]
     Active Substance: FOLIC ACID
     Indication: PRODUCT USED FOR UNKNOWN INDICATION
  5. METHOTREXATE. [Concomitant]
     Active Substance: METHOTREXATE
     Indication: PRODUCT USED FOR UNKNOWN INDICATION
     Route: 050
  6. HUMIRA [Suspect]
     Active Substance: ADALIMUMAB
     Indication: RHEUMATOID ARTHRITIS
     Route: 058
     Dates: start: 2011, end: 201901
  7. CENTRUM SILVER [Concomitant]
     Active Substance: MINERALS\VITAMINS
     Indication: PRODUCT USED FOR UNKNOWN INDICATION
  8. VITAMIN D [Concomitant]
     Active Substance: VITAMIN D NOS
     Indication: PRODUCT USED FOR UNKNOWN INDICATION
  9. VITAMIN E [Concomitant]
     Active Substance: .ALPHA.-TOCOPHEROL
     Indication: PRODUCT USED FOR UNKNOWN INDICATION

REACTIONS (30)
  - Injection site bruising [Recovering/Resolving]
  - Knee arthroplasty [Recovered/Resolved]
  - Osteoarthritis [Not Recovered/Not Resolved]
  - Arthralgia [Unknown]
  - Bacterial test positive [Unknown]
  - Weight increased [Not Recovered/Not Resolved]
  - Joint stiffness [Unknown]
  - Dry throat [Unknown]
  - Road traffic accident [Recovering/Resolving]
  - Ligament sprain [Not Recovered/Not Resolved]
  - Joint range of motion decreased [Not Recovered/Not Resolved]
  - Dyspnoea [Unknown]
  - Therapeutic product effect decreased [Not Recovered/Not Resolved]
  - Rotator cuff repair [Unknown]
  - Constipation [Unknown]
  - Rash papular [Unknown]
  - Limb mass [Unknown]
  - Hand fracture [Unknown]
  - Emphysema [Unknown]
  - Blood test abnormal [Unknown]
  - Alopecia [Not Recovered/Not Resolved]
  - Joint swelling [Unknown]
  - Sinus congestion [Unknown]
  - Dehydration [Unknown]
  - Herpes zoster [Recovered/Resolved]
  - Heart rate increased [Unknown]
  - Dry eye [Unknown]
  - Dry skin [Unknown]
  - Infection [Recovering/Resolving]
  - Upper respiratory tract infection [Unknown]

NARRATIVE: CASE EVENT DATE: 2016
